FAERS Safety Report 8616287-5 (Version None)
Quarter: 2012Q3

REPORT INFORMATION
  Report Type: 
  Country: None (occurrence: None)
  Receive Date: 20120815
  Receipt Date: 20120815
  Transmission Date: 20120928
  Serious: Yes (Other)
  Sender: FDA-Public Use
  Company Number: None

PATIENT
  Age: 86 Year
  Sex: Female
  Weight: 81.6475 kg

DRUGS (3)
  1. GABAPENTIN [Suspect]
     Indication: HEADACHE
     Dosage: 1 CAPSULE EVERY EVENING PO
     Route: 048
  2. GLIMEPIRIDE [Concomitant]
  3. METFORMIN HCL [Concomitant]

REACTIONS (5)
  - IMMOBILE [None]
  - COORDINATION ABNORMAL [None]
  - DIZZINESS [None]
  - BALANCE DISORDER [None]
  - INTENTION TREMOR [None]
